FAERS Safety Report 20786751 (Version 1)
Quarter: 2022Q2

REPORT INFORMATION
  Report Type: Spontaneous
  Country: QA (occurrence: QA)
  Receive Date: 20220505
  Receipt Date: 20220505
  Transmission Date: 20220720
  Serious: Yes (Other)
  Sender: FDA-Public Use
  Company Number: QA-PFIZER INC-202200620708

PATIENT
  Age: 45 Year
  Sex: Male

DRUGS (2)
  1. ENBREL [Suspect]
     Active Substance: ETANERCEPT
     Indication: Product used for unknown indication
     Dosage: 50 MILLIGRAM, QWK
     Route: 058
     Dates: start: 20200920
  2. ENBREL [Suspect]
     Active Substance: ETANERCEPT
     Dosage: EVERY 10 TO 14 DAYS
     Route: 065

REACTIONS (3)
  - Skin haemorrhage [Recovered/Resolved]
  - Subcutaneous abscess [Recovered/Resolved]
  - Off label use [Unknown]
